FAERS Safety Report 12232809 (Version 4)
Quarter: 2016Q2

REPORT INFORMATION
  Report Type: Spontaneous
  Country: CZ (occurrence: CZ)
  Receive Date: 20160402
  Receipt Date: 20160624
  Transmission Date: 20160815
  Serious: Yes (Hospitalization, Other)
  Sender: FDA-Public Use
  Company Number: CZ-AMGEN-CZESP2016038903

PATIENT
  Age: 56 Year
  Sex: Male
  Weight: 111 kg

DRUGS (8)
  1. TOLUCOMBI [Concomitant]
     Dosage: 25 MG/80 MG, 1X/DAY, 1-0-0
  2. ENBREL [Suspect]
     Active Substance: ETANERCEPT
     Indication: ANKYLOSING SPONDYLITIS
     Dosage: UNK
     Route: 058
     Dates: start: 20111130, end: 20151230
  3. TOLUCOMBI [Concomitant]
     Dosage: UNK, QD
  4. TOLUCOMBI [Concomitant]
     Dosage: 25 MG/80 MG, 1X/DAY, 1-0-0
  5. TOLUCOMBI [Concomitant]
     Dosage: UNK, QD
  6. MILURIT [Concomitant]
     Active Substance: ALLOPURINOL
     Dosage: 100 MG, 1X/DAY, 1-0-0
  7. LAGOSA [Concomitant]
     Dosage: 150 MG, 3X/DAY, 1-1-1
  8. RILMENIDIN TEVA [Concomitant]
     Dosage: 1 MG, 2X/DAY, 1-0-1

REACTIONS (6)
  - Liver disorder [Recovering/Resolving]
  - Varices oesophageal [Unknown]
  - Cholecystitis acute [Recovered/Resolved]
  - Hepatic cirrhosis [Unknown]
  - Coagulopathy [Unknown]
  - Disease progression [Recovering/Resolving]

NARRATIVE: CASE EVENT DATE: 201504
